FAERS Safety Report 15534163 (Version 2)
Quarter: 2019Q1

REPORT INFORMATION
  Report Type: Spontaneous
  Country: US (occurrence: US)
  Receive Date: 20181019
  Receipt Date: 20190117
  Transmission Date: 20190417
  Serious: Yes (Death, Other)
  Sender: FDA-Public Use
  Company Number: US-009507513-1810USA006936

PATIENT
  Age: 57 Year
  Sex: Male

DRUGS (2)
  1. INTRON A [Suspect]
     Active Substance: INTERFERON ALFA-2B
     Indication: PRODUCT USE IN UNAPPROVED INDICATION
     Dosage: STRENGTH:6 MMU,3 MILLION IU, EVERY MONDAY AND WEDNESDAY
     Route: 058
     Dates: start: 20180226, end: 20180501
  2. BEXAROTENE. [Concomitant]
     Active Substance: BEXAROTENE
     Dosage: UNK

REACTIONS (2)
  - Death [Fatal]
  - Product use in unapproved indication [Unknown]

NARRATIVE: CASE EVENT DATE: 20180226
